FAERS Safety Report 8911524 (Version 1)
Quarter: 2012Q4

REPORT INFORMATION
  Report Type: 
  Country: VE (occurrence: VE)
  Receive Date: 20121116
  Receipt Date: 20121116
  Transmission Date: 20130627
  Serious: Yes (Other)
  Sender: FDA-Public Use
  Company Number: VE-009507513-1211VEN006233

PATIENT
  Age: 75 Year

DRUGS (1)
  1. HYZAAR [Suspect]
     Dosage: 100/12.5 UNK, qd
     Route: 048

REACTIONS (3)
  - Hypertensive crisis [Unknown]
  - Fatigue [Unknown]
  - Dyspnoea [Unknown]
